FAERS Safety Report 10366206 (Version 1)
Quarter: 2014Q3

REPORT INFORMATION
  Report Type: Spontaneous
  Country: US (occurrence: None)
  Receive Date: 20140805
  Receipt Date: 20140805
  Transmission Date: 20150326
  Serious: Yes (Other)
  Sender: FDA-Public Use
  Company Number: None

PATIENT
  Age: 28 Year
  Sex: Female
  Weight: 56.7 kg

DRUGS (1)
  1. METHYLPHENIDATE ER 36 MG [Suspect]
     Active Substance: METHYLPHENIDATE
     Indication: ATTENTION DEFICIT/HYPERACTIVITY DISORDER
     Dosage: 36MG ONCE A DAY IN MORNING ONCE DAILY TAKEN BY MOUTH
     Route: 048
     Dates: start: 20140801, end: 20140804

REACTIONS (8)
  - Hyperhidrosis [None]
  - Lethargy [None]
  - Product substitution issue [None]
  - Product quality issue [None]
  - Irritability [None]
  - Therapeutic response decreased [None]
  - Migraine [None]
  - Therapeutic response changed [None]

NARRATIVE: CASE EVENT DATE: 20140801
